FAERS Safety Report 9665378 (Version 1)
Quarter: 2013Q4

REPORT INFORMATION
  Report Type: Spontaneous
  Country: US (occurrence: US)
  Receive Date: 20131104
  Receipt Date: 20131104
  Transmission Date: 20140711
  Serious: No
  Sender: FDA-Public Use
  Company Number: US-009507513-1310USA014799

PATIENT
  Age: 55 Year
  Sex: Female

DRUGS (5)
  1. HYZAAR [Suspect]
     Indication: HYPERTENSION
     Dosage: 1 TABLET ONCE DAILY
     Route: 048
     Dates: start: 20120608
  2. NEXIUM [Concomitant]
  3. CELEXA [Concomitant]
  4. PROTOPIC [Concomitant]
  5. VERAPAMIL [Concomitant]

REACTIONS (2)
  - Tinnitus [Unknown]
  - Drug ineffective [Unknown]
